FAERS Safety Report 9447169 (Version 1)
Quarter: 2013Q3

REPORT INFORMATION
  Report Type: Spontaneous
  Country: US (occurrence: US)
  Receive Date: 20130807
  Receipt Date: 20130807
  Transmission Date: 20140515
  Serious: No
  Sender: FDA-Public Use
  Company Number: US-AMGEN-USASP2013047226

PATIENT
  Age: 64 Year
  Sex: Female

DRUGS (1)
  1. ENBREL [Suspect]
     Indication: RHEUMATOID ARTHRITIS
     Dosage: 50 MG, ONE PER WEEK
     Route: 058
     Dates: start: 201305, end: 201306

REACTIONS (7)
  - Rash erythematous [Recovered/Resolved]
  - Pain in extremity [Recovered/Resolved]
  - Rash [Recovered/Resolved]
  - Muscle spasms [Not Recovered/Not Resolved]
  - Injection site reaction [Recovered/Resolved]
  - Injection site swelling [Not Recovered/Not Resolved]
  - Injection site erythema [Not Recovered/Not Resolved]
